FAERS Safety Report 9668803 (Version 1)
Quarter: 2013Q4

REPORT INFORMATION
  Report Type: Report from Study
  Country: DE (occurrence: DE)
  Receive Date: 20131105
  Receipt Date: 20131105
  Transmission Date: 20140711
  Serious: Yes (Hospitalization)
  Sender: FDA-Public Use
  Company Number: DE-JNJFOC-20131100942

PATIENT
  Age: 92 Year
  Sex: Male
  Weight: 72 kg

DRUGS (4)
  1. XARELTO [Suspect]
     Indication: CEREBROVASCULAR ACCIDENT PROPHYLAXIS
     Route: 048
     Dates: start: 20130924
  2. TOREM [Concomitant]
     Route: 065
  3. NORVASC [Concomitant]
     Route: 065
  4. DELIX [Concomitant]
     Route: 065

REACTIONS (1)
  - Haemoglobin decreased [Recovered/Resolved]
